FAERS Safety Report 9644181 (Version 1)
Quarter: 2013Q4

REPORT INFORMATION
  Report Type: Spontaneous
  Country: US (occurrence: US)
  Receive Date: 20131024
  Receipt Date: 20131024
  Transmission Date: 20140711
  Serious: No
  Sender: FDA-Public Use
  Company Number: US-TEVA-438742USA

PATIENT
  Age: 40 Year
  Sex: Female

DRUGS (1)
  1. TREANDA [Suspect]
     Indication: B-CELL LYMPHOMA

REACTIONS (1)
  - Nausea [Unknown]
